FAERS Safety Report 20848928 (Version 4)
Quarter: 2022Q3

REPORT INFORMATION
  Report Type: Spontaneous
  Country: DE (occurrence: DE)
  Receive Date: 20220519
  Receipt Date: 20220802
  Transmission Date: 20221027
  Serious: Yes (Other)
  Sender: FDA-Public Use
  Company Number: DE-NOVARTISPH-NVSC2022DE112775

PATIENT
  Sex: Male

DRUGS (1)
  1. ETANERCEPT [Suspect]
     Active Substance: ETANERCEPT
     Indication: Product used for unknown indication
     Dosage: UNK, QW
     Route: 065
     Dates: start: 2022

REACTIONS (2)
  - Orbital myositis [Unknown]
  - Diplopia [Unknown]

NARRATIVE: CASE EVENT DATE: 20220101
